FAERS Safety Report 13761803 (Version 4)
Quarter: 2018Q3

REPORT INFORMATION
  Report Type: Report from Study
  Country: KR (occurrence: KR)
  Receive Date: 20170718
  Receipt Date: 20180917
  Transmission Date: 20181010
  Serious: Yes (Hospitalization, Other)
  Sender: FDA-Public Use
  Company Number: KR-TAKEDA-2017TUS015033

PATIENT
  Age: 65 Year
  Sex: Female
  Weight: 63.2 kg

DRUGS (8)
  1. ALPRAZOLAM. [Concomitant]
     Active Substance: ALPRAZOLAM
     Indication: MAJOR DEPRESSION
     Dosage: 0.125 MG, UNK
     Route: 048
     Dates: start: 20170119, end: 20170606
  2. VORTIOXETINE. [Suspect]
     Active Substance: VORTIOXETINE
     Indication: MAJOR DEPRESSION
     Dosage: 5 MG, QD
     Route: 048
     Dates: start: 20170103, end: 20170418
  3. VORTIOXETINE. [Suspect]
     Active Substance: VORTIOXETINE
     Dosage: 5 MG, QD
     Route: 048
     Dates: start: 20170607, end: 20170608
  4. LAFUTIDINE [Concomitant]
     Active Substance: LAFUTIDINE
     Indication: GASTRITIS
     Dosage: 10 MG, UNK
     Route: 048
     Dates: start: 20160405, end: 20170608
  5. ESOMEPRAZOLE MAGNESIUM. [Concomitant]
     Active Substance: ESOMEPRAZOLE MAGNESIUM
     Indication: GASTRITIS
     Dosage: 20 MG, UNK
     Route: 048
     Dates: start: 20160610, end: 20170605
  6. INDAPAMIDE. [Concomitant]
     Active Substance: INDAPAMIDE
     Indication: ATRIAL FIBRILLATION
     Dosage: 1.5 MG, UNK
     Route: 048
     Dates: start: 20170302, end: 20170605
  7. CLONAZEPAM. [Concomitant]
     Active Substance: CLONAZEPAM
     Indication: MAJOR DEPRESSION
     Dosage: 0.5 MG, UNK
     Route: 048
     Dates: start: 20160922, end: 20170607
  8. SERTRALINE [Concomitant]
     Active Substance: SERTRALINE HYDROCHLORIDE
     Indication: MAJOR DEPRESSION
     Dosage: 150 MG, UNK
     Route: 048
     Dates: start: 20160524, end: 20170417

REACTIONS (7)
  - Drug ineffective [Unknown]
  - Asthenia [Recovered/Resolved]
  - Tinea cruris [Recovered/Resolved]
  - Treatment noncompliance [Unknown]
  - Erysipelas [Recovered/Resolved]
  - Nasopharyngitis [Recovered/Resolved]
  - Vulvitis [Recovered/Resolved]

NARRATIVE: CASE EVENT DATE: 201704
